FAERS Safety Report 6540584-0 (Version None)
Quarter: 2010Q1

REPORT INFORMATION
  Report Type: 
  Country: None (occurrence: None)
  Receive Date: 20100112
  Receipt Date: 20091023
  Transmission Date: 20100710
  Serious: No
  Sender: FDA-Public Use
  Company Number: 2009-00699

PATIENT
  Age: 54 Year
  Sex: Female
  Weight: 55.7924 kg

DRUGS (1)
  1. COLD REMEDY NASAL GEL [Suspect]
     Dosage: Q 4 HRS - 2 DAYS; 1 MO AGO - 2 DAYS LATER

REACTIONS (2)
  - AGEUSIA [None]
  - ANOSMIA [None]
